FAERS Safety Report 12570212 (Version 1)
Quarter: 2016Q3

REPORT INFORMATION
  Report Type: Spontaneous
  Country: US (occurrence: US)
  Receive Date: 20160719
  Receipt Date: 20160719
  Transmission Date: 20161109
  Serious: No
  Sender: FDA-Public Use
  Company Number: US-MALLINCKRODT-T201503689

PATIENT
  Sex: Female
  Weight: 54 kg

DRUGS (16)
  1. VITAMIN B12 [Concomitant]
     Active Substance: CYANOCOBALAMIN
  2. MORPHINE [Suspect]
     Active Substance: MORPHINE
     Dosage: 60 MG, BID
     Route: 048
     Dates: start: 201505
  3. PREDNISONE. [Suspect]
     Active Substance: PREDNISONE
  4. MORPHINE [Suspect]
     Active Substance: MORPHINE
     Indication: COMPLEX REGIONAL PAIN SYNDROME
     Dosage: 60 MG,TID
     Route: 048
  5. MORPHINE [Suspect]
     Active Substance: MORPHINE
     Dosage: 15 MG, QD
     Route: 048
     Dates: end: 20150725
  6. NORCO [Concomitant]
     Active Substance: ACETAMINOPHEN\HYDROCODONE BITARTRATE
  7. NEXIUM [Concomitant]
     Active Substance: ESOMEPRAZOLE MAGNESIUM
  8. MORPHINE [Suspect]
     Active Substance: MORPHINE
     Dosage: 30 MG, TID
     Route: 048
  9. MORPHINE [Suspect]
     Active Substance: MORPHINE
     Dosage: 15 MG QAM AND 30 MG QPM
     Route: 048
  10. SOLU-MEDROL [Suspect]
     Active Substance: METHYLPREDNISOLONE SODIUM SUCCINATE
  11. CLONAZEPAM. [Concomitant]
     Active Substance: CLONAZEPAM
     Dosage: 1 MG
  12. CALCIUM [Concomitant]
     Active Substance: CALCIUM
     Dosage: 1200 MG
  13. MORPHINE [Suspect]
     Active Substance: MORPHINE
     Dosage: 30 MG, BID
     Route: 048
  14. MORPHINE [Suspect]
     Active Substance: MORPHINE
     Dosage: 15 MG, BID
     Route: 048
  15. NORTRIPTYLINE [Concomitant]
     Active Substance: NORTRIPTYLINE
     Dosage: 10 MG
  16. VITAMIN D [Concomitant]
     Active Substance: CHOLECALCIFEROL

REACTIONS (7)
  - Insomnia [Recovered/Resolved]
  - Micturition urgency [Not Recovered/Not Resolved]
  - Night sweats [Not Recovered/Not Resolved]
  - Drug ineffective [Not Recovered/Not Resolved]
  - Drug diversion [Unknown]
  - Constipation [Recovered/Resolved]
  - Migraine [Recovered/Resolved]

NARRATIVE: CASE EVENT DATE: 2015
